FAERS Safety Report 8285263-7 (Version None)
Quarter: 2012Q2

REPORT INFORMATION
  Report Type: 
  Country: None (occurrence: None)
  Receive Date: 20120413
  Receipt Date: 20120208
  Transmission Date: 20120825
  Serious: No
  Sender: FDA-Public Use
  Company Number: US-ASTRAZENECA-2012SE08576

PATIENT
  Sex: Female

DRUGS (3)
  1. NEXIUM [Suspect]
     Indication: GASTRIC DISORDER
     Route: 048
  2. BLOOD PRESSURE PILLS [Concomitant]
  3. PROTONIX [Concomitant]

REACTIONS (3)
  - LIP DRY [None]
  - DRUG DOSE OMISSION [None]
  - OFF LABEL USE [None]
